FAERS Safety Report 7194350-6 (Version None)
Quarter: 2010Q4

REPORT INFORMATION
  Report Type: 
  Country: None (occurrence: None)
  Receive Date: 20101223
  Receipt Date: 20101213
  Transmission Date: 20110411
  Serious: Yes (Hospitalization, Other)
  Sender: FDA-Public Use
  Company Number: US-ELI_LILLY_AND_COMPANY-US200912003623

PATIENT
  Age: 38 Year
  Sex: Female

DRUGS (4)
  1. CYMBALTA [Suspect]
     Indication: DEPRESSION
     Dosage: 60 MG, DAILY (1/D)
     Dates: start: 20090508, end: 20091121
  2. CYMBALTA [Suspect]
     Dosage: 60 MG, DAILY (1/D)
     Dates: start: 20091130
  3. PRENATAL [Concomitant]
  4. BENADRYL [Concomitant]
     Indication: PANIC REACTION
     Dates: start: 20091130

REACTIONS (9)
  - CONVULSION [None]
  - DRUG EXPOSURE DURING PREGNANCY [None]
  - DYSPHORIA [None]
  - ECLAMPSIA [None]
  - NAUSEA [None]
  - PANIC REACTION [None]
  - PRE-ECLAMPSIA [None]
  - VOMITING [None]
  - VOMITING IN PREGNANCY [None]
